FAERS Safety Report 21446817 (Version 1)
Quarter: 2022Q4

REPORT INFORMATION
  Report Type: Spontaneous
  Country: ES (occurrence: ES)
  Receive Date: 20221012
  Receipt Date: 20221012
  Transmission Date: 20230113
  Serious: Yes (Hospitalization, Other)
  Sender: FDA-Public Use
  Company Number: ES-NOVARTISPH-NVSC2022ES224056

PATIENT
  Age: 39 Year
  Sex: Male

DRUGS (1)
  1. COSENTYX [Suspect]
     Active Substance: SECUKINUMAB
     Indication: Hidradenitis
     Dosage: 300 MG, QW (EVERY WEEK FOR 5 WEEKS)
     Route: 058
     Dates: start: 20220701, end: 20220823

REACTIONS (9)
  - Haematochezia [Not Recovered/Not Resolved]
  - Colitis [Not Recovered/Not Resolved]
  - Gastroenteritis [Recovering/Resolving]
  - Pyrexia [Not Recovered/Not Resolved]
  - Diarrhoea [Recovering/Resolving]
  - Skin lesion [Recovering/Resolving]
  - Frequent bowel movements [Not Recovered/Not Resolved]
  - Rectal tenesmus [Not Recovered/Not Resolved]
  - Weight decreased [Not Recovered/Not Resolved]

NARRATIVE: CASE EVENT DATE: 20220812
